FAERS Safety Report 18986674 (Version 4)
Quarter: 2021Q3

REPORT INFORMATION
  Report Type: Spontaneous
  Country: US (occurrence: US)
  Receive Date: 20210309
  Receipt Date: 20210714
  Transmission Date: 20211014
  Serious: Yes (Other)
  Sender: FDA-Public Use
  Company Number: US-PFIZER INC-2021148099

PATIENT
  Age: 59 Year
  Sex: Male

DRUGS (2)
  1. INLYTA [Suspect]
     Active Substance: AXITINIB
     Dosage: UNK
  2. KEYTRUDA [Suspect]
     Active Substance: PEMBROLIZUMAB
     Dosage: UNK

REACTIONS (9)
  - Wound [Unknown]
  - Fatigue [Unknown]
  - Dysgeusia [Unknown]
  - Blood creatinine increased [Unknown]
  - Aphonia [Unknown]
  - Weight decreased [Unknown]
  - Oral disorder [Unknown]
  - Decreased appetite [Unknown]
  - Stomatitis [Unknown]
